FAERS Safety Report 8119620-6 (Version None)
Quarter: 2012Q1

REPORT INFORMATION
  Report Type: 
  Country: None (occurrence: None)
  Receive Date: 20120207
  Receipt Date: 20120131
  Transmission Date: 20120608
  Serious: Yes (Other)
  Sender: FDA-Public Use
  Company Number: PHHY2011US30276

PATIENT
  Sex: Female

DRUGS (6)
  1. KEPPRA [Concomitant]
     Dosage: UNK UKN, QD
     Route: 048
  2. PROVIGIL [Concomitant]
     Route: 048
  3. ROBAXIN [Concomitant]
     Dosage: UNK UKN, BID
     Route: 048
  4. LEXAPRO [Concomitant]
     Dosage: 10 MG, UNK
     Route: 048
  5. GILENYA [Suspect]
     Indication: MULTIPLE SCLEROSIS
     Dosage: UNK UKN, QD
     Route: 048
     Dates: end: 20110707
  6. BACLOFEN [Concomitant]
     Dosage: UNK UKN, QHS
     Route: 048

REACTIONS (4)
  - MACULAR OEDEMA [None]
  - VISUAL ACUITY REDUCED [None]
  - RETINAL VEIN OCCLUSION [None]
  - RETINAL HAEMORRHAGE [None]
